FAERS Safety Report 5864132-3 (Version None)
Quarter: 2008Q3

REPORT INFORMATION
  Report Type: 
  Country: None (occurrence: None)
  Receive Date: 20080829
  Receipt Date: 20080820
  Transmission Date: 20090109
  Serious: Yes (Hospitalization)
  Sender: FDA-Public Use
  Company Number: IE-AMGEN-UK206905

PATIENT
  Sex: Male

DRUGS (5)
  1. PANITUMUMAB [Suspect]
     Indication: COLORECTAL CANCER
     Route: 041
     Dates: start: 20070110
  2. FLUOROURACIL [Suspect]
     Route: 040
     Dates: start: 20070110
  3. FLUOROURACIL [Suspect]
  4. IRINOTECAN HCL [Concomitant]
     Route: 041
  5. LEUCOVORIN CALCIUM [Concomitant]
     Route: 041

REACTIONS (1)
  - CHEST PAIN [None]
